FAERS Safety Report 22029912 (Version 2)
Quarter: 2023Q1

REPORT INFORMATION
  Report Type: Report from Study
  Country: IE (occurrence: IE)
  Receive Date: 20230223
  Receipt Date: 20230317
  Transmission Date: 20230417
  Serious: Yes (Other)
  Sender: FDA-Public Use
  Company Number: IE-JNJFOC-20230200720

PATIENT
  Age: 54 Year
  Sex: Male

DRUGS (8)
  1. ABIRATERONE [Suspect]
     Active Substance: ABIRATERONE
     Indication: Prostate cancer metastatic
     Dosage: 1000 MILLIGRAM
     Route: 048
     Dates: start: 20220816
  2. PREDNISONE [Concomitant]
     Active Substance: PREDNISONE
     Dosage: 5 MILLIGRAM, QD
     Route: 065
  3. TAMSULOSIN HYDROCHLORIDE [Concomitant]
     Active Substance: TAMSULOSIN HYDROCHLORIDE
     Dosage: 400 MILLIGRAM, QD
     Route: 065
  4. OMEPRAZOLE [Concomitant]
     Active Substance: OMEPRAZOLE
     Dosage: 20 MILLIGRAM, QD
     Route: 065
  5. ZESTRIL [Concomitant]
     Active Substance: LISINOPRIL
     Dosage: 20 MILLIGRAM, QD
     Route: 065
  6. AMLODIPINE BESYLATE [Concomitant]
     Active Substance: AMLODIPINE BESYLATE
     Dosage: 10 MILLIGRAM, QD
     Route: 065
  7. URISPAS [Concomitant]
     Active Substance: FLAVOXATE HYDROCHLORIDE
     Dosage: 200 MILLIGRAM
     Route: 065
  8. BISOPROLOL [Concomitant]
     Active Substance: BISOPROLOL
     Dosage: 2.5 MILLIGRAM, QD
     Route: 065

REACTIONS (1)
  - Haematochezia [Recovering/Resolving]
